FAERS Safety Report 23569111 (Version 2)
Quarter: 2024Q1

REPORT INFORMATION
  Report Type: Report from Study
  Country: CA (occurrence: CA)
  Receive Date: 20240227
  Receipt Date: 20240314
  Transmission Date: 20240410
  Serious: No
  Sender: FDA-Public Use
  Company Number: CA-ABBVIE-5654089

PATIENT
  Age: 39 Year
  Sex: Female

DRUGS (2)
  1. VENCLEXTA [Suspect]
     Active Substance: VENETOCLAX
     Indication: Prostate cancer
     Route: 048
     Dates: start: 2024
  2. VENCLEXTA [Suspect]
     Active Substance: VENETOCLAX
     Indication: Prostate cancer
     Dosage: LAST ADMIN DATE 2024
     Route: 048
     Dates: start: 20240124

REACTIONS (1)
  - Abscess neck [Unknown]

NARRATIVE: CASE EVENT DATE: 20240101
